FAERS Safety Report 11860539 (Version 2)
Quarter: 2016Q1

REPORT INFORMATION
  Report Type: Spontaneous
  Country: FR (occurrence: FR)
  Receive Date: 20151222
  Receipt Date: 20160112
  Transmission Date: 20160526
  Serious: Yes (Other)
  Sender: FDA-Public Use
  Company Number: FR-ABBVIE-15K-056-1520886-00

PATIENT
  Age: 52 Year
  Sex: Female
  Weight: 55 kg

DRUGS (1)
  1. HUMIRA [Suspect]
     Active Substance: ADALIMUMAB
     Indication: CROHN^S DISEASE
     Route: 058
     Dates: start: 201502, end: 201512

REACTIONS (5)
  - Pigmentation disorder [Unknown]
  - Nodular rash [Recovered/Resolved with Sequelae]
  - Antinuclear antibody positive [Unknown]
  - DNA antibody positive [Unknown]
  - Drug eruption [Recovered/Resolved with Sequelae]

NARRATIVE: CASE EVENT DATE: 201504
